FAERS Safety Report 8610213-0 (Version None)
Quarter: 2012Q3

REPORT INFORMATION
  Report Type: 
  Country: None (occurrence: None)
  Receive Date: 20120822
  Receipt Date: 20120720
  Transmission Date: 20120928
  Serious: Yes (Hospitalization, Disabling, Other)
  Sender: FDA-Public Use
  Company Number: US-MSD-1205USA02842

PATIENT

DRUGS (2)
  1. VITAMINS (UNSPECIFIED) [Concomitant]
     Dosage: UNK
     Dates: start: 19880101
  2. FOSAMAX [Suspect]
     Indication: OSTEOPOROSIS
     Dosage: UNK
     Route: 048
     Dates: start: 20000101, end: 20100101

REACTIONS (6)
  - FEMUR FRACTURE [None]
  - GAIT DISTURBANCE [None]
  - LOW TURNOVER OSTEOPATHY [None]
  - OSTEOPOROSIS [None]
  - STRESS FRACTURE [None]
  - VASCULAR CALCIFICATION [None]
